FAERS Safety Report 16674713 (Version 1)
Quarter: 2019Q3

REPORT INFORMATION
  Report Type: Report from Study
  Country: US (occurrence: US)
  Receive Date: 20190806
  Receipt Date: 20190806
  Transmission Date: 20191004
  Serious: Yes (Death)
  Sender: FDA-Public Use
  Company Number: US-ACTELION-A-NJ2015-121633

PATIENT
  Sex: Male
  Weight: 63.49 kg

DRUGS (3)
  1. OPSUMIT [Suspect]
     Active Substance: MACITENTAN
     Indication: PULMONARY ARTERIAL HYPERTENSION
     Dosage: 10 MG, QD
     Route: 048
  2. TYVASO [Concomitant]
     Active Substance: TREPROSTINIL
  3. REVATIO [Concomitant]
     Active Substance: SILDENAFIL CITRATE

REACTIONS (7)
  - Diarrhoea [Unknown]
  - Weight decreased [Unknown]
  - Pruritus [Recovering/Resolving]
  - Skin irritation [Recovering/Resolving]
  - Death [Fatal]
  - Papule [Recovering/Resolving]
  - Scab [Recovering/Resolving]
